FAERS Safety Report 10342250 (Version 1)
Quarter: 2014Q3

REPORT INFORMATION
  Report Type: Spontaneous
  Country: FR (occurrence: FR)
  Receive Date: 20140725
  Receipt Date: 20140725
  Transmission Date: 20150326
  Serious: Yes (Hospitalization)
  Sender: FDA-Public Use
  Company Number: PHHY2014FR090571

PATIENT
  Age: 76 Year
  Sex: Female

DRUGS (10)
  1. LEVOTHYROX [Concomitant]
     Active Substance: LEVOTHYROXINE
  2. TRAMADOL [Suspect]
     Active Substance: TRAMADOL
     Dosage: UNK UKN, UNK
     Route: 048
     Dates: end: 20140626
  3. PAROXETINE [Suspect]
     Active Substance: PAROXETINE\PAROXETINE HYDROCHLORIDE
     Dosage: UNK UKN, UNK
     Route: 048
     Dates: end: 20140626
  4. FENTANYL. [Suspect]
     Active Substance: FENTANYL
     Dosage: UNK UKN, UNK
     Route: 048
     Dates: end: 20140626
  5. VOLTARENE [Suspect]
     Active Substance: DICLOFENAC SODIUM
     Dosage: UNK UKN, UNK
     Route: 048
     Dates: end: 20140626
  6. NASACORT [Suspect]
     Active Substance: TRIAMCINOLONE ACETONIDE
     Dosage: UNK UKN, UNK
     Route: 048
     Dates: end: 20140626
  7. ZOLPIDEM [Concomitant]
     Active Substance: ZOLPIDEM\ZOLPIDEM TARTRATE
  8. SERTRALINE [Concomitant]
     Active Substance: SERTRALINE HYDROCHLORIDE
     Route: 048
  9. RABEPRAZOLE [Suspect]
     Active Substance: RABEPRAZOLE
     Dosage: UNK UKN, UNK
     Route: 048
     Dates: end: 20140626
  10. SOLUPRED [Suspect]
     Active Substance: PREDNISOLONE
     Dosage: UNK UKN, UNK
     Route: 048
     Dates: end: 20140626

REACTIONS (1)
  - Hyponatraemia [Recovered/Resolved]

NARRATIVE: CASE EVENT DATE: 20140626
